FAERS Safety Report 9660873 (Version 5)
Quarter: 2013Q4

REPORT INFORMATION
  Report Type: Spontaneous
  Country: JP (occurrence: JP)
  Receive Date: 20131031
  Receipt Date: 20131205
  Transmission Date: 20140711
  Serious: Yes (Hospitalization)
  Sender: FDA-Public Use
  Company Number: JP-PFIZER INC-2013228058

PATIENT
  Age: 42 Year
  Sex: Male
  Weight: 60.8 kg

DRUGS (7)
  1. RHEUMATREX [Suspect]
     Indication: RHEUMATOID ARTHRITIS
     Dosage: 6 MG, WEEKLY
     Route: 048
     Dates: start: 20130625, end: 20130723
  2. CYTOTEC [Suspect]
     Indication: RHEUMATOID ARTHRITIS
     Dosage: 200 UG, 3X/DAY
     Route: 048
     Dates: start: 20130611, end: 20130723
  3. BAKTAR [Suspect]
     Indication: RHEUMATOID ARTHRITIS
     Dosage: 1 DF, 1X/DAY
     Route: 048
     Dates: start: 20130625, end: 20130723
  4. LOXONIN [Suspect]
     Indication: RHEUMATOID ARTHRITIS
     Dosage: 60 MG, 3X/DAY
     Route: 048
     Dates: start: 201304, end: 20130723
  5. CEPHARANTHIN [Concomitant]
     Indication: ALOPECIA AREATA
     Dosage: 1 MG, 1X/DAY
     Route: 048
  6. ALLEGRA [Concomitant]
     Indication: ALOPECIA AREATA
     Dosage: 60 MG, 1X/DAY
     Route: 048
  7. PREDNISOLONE [Concomitant]
     Indication: RHEUMATOID ARTHRITIS
     Dosage: 5 MG, 1X/DAY
     Route: 048
     Dates: start: 201305, end: 20130724

REACTIONS (1)
  - Eosinophilic pneumonia acute [Recovered/Resolved]
